FAERS Safety Report 10463149 (Version 1)
Quarter: 2014Q3

REPORT INFORMATION
  Report Type: Spontaneous
  Country: US (occurrence: US)
  Receive Date: 20140919
  Receipt Date: 20140919
  Transmission Date: 20150326
  Serious: Yes (Death, Other)
  Sender: FDA-Public Use
  Company Number: US-009507513-1409USA007357

PATIENT
  Sex: Male

DRUGS (1)
  1. EMEND [Suspect]
     Active Substance: APREPITANT
     Dosage: DOSE:150 MG, FREQUENCY UNKNOWN
     Route: 042
     Dates: start: 20140827, end: 20140827

REACTIONS (1)
  - Lung neoplasm malignant [Fatal]
